FAERS Safety Report 11099131 (Version 1)
Quarter: 2015Q2

REPORT INFORMATION
  Report Type: Spontaneous
  Country: IL (occurrence: None)
  Receive Date: 20150506
  Receipt Date: 20150506
  Transmission Date: 20150821
  Serious: Yes (Hospitalization)
  Sender: FDA-Public Use
  Company Number: 2015PL000061

PATIENT
  Age: 65 Year
  Sex: Male

DRUGS (2)
  1. ALLOPURINOL (ALLOPURINOL) TABLET [Suspect]
     Active Substance: ALLOPURINOL
     Indication: BLOOD URIC ACID
  2. PREDNISONE (PREDNISONE) [Concomitant]
     Active Substance: PREDNISONE

REACTIONS (3)
  - Renal failure [None]
  - Drug reaction with eosinophilia and systemic symptoms [None]
  - Blood glucose increased [None]
